FAERS Safety Report 4272212-1 (Version None)
Quarter: 2004Q1

REPORT INFORMATION
  Report Type: 
  Country: None (occurrence: None)
  Receive Date: 20040114
  Receipt Date: 20040105
  Transmission Date: 20041129
  Serious: Yes (Other)
  Sender: FDA-Public Use
  Company Number: 2003-12-1463

PATIENT
  Age: 66 Year
  Sex: Female

DRUGS (9)
  1. PROVENTIL-HFA [Suspect]
     Dosage: ORAL AER INH
     Route: 055
     Dates: start: 20030530
  2. NIASPAN [Concomitant]
  3. PREMARIN [Concomitant]
  4. SYNTHROID [Concomitant]
  5. ADVAIR (SALMETEROL/FLUTICASONE) [Concomitant]
  6. ULTRAM [Concomitant]
  7. PREVACID [Concomitant]
  8. CALCIUM [Concomitant]
  9. CEFUROXIME [Concomitant]

REACTIONS (14)
  - AGEUSIA [None]
  - CAUSTIC INJURY [None]
  - DEVICE FAILURE [None]
  - GLOSSITIS [None]
  - GLOSSODYNIA [None]
  - LIP BLISTER [None]
  - LUNG INFECTION [None]
  - OEDEMA PERIPHERAL [None]
  - ORAL PAIN [None]
  - PALPITATIONS [None]
  - RHINITIS [None]
  - SJOGREN'S SYNDROME [None]
  - TONGUE BLISTERING [None]
  - WOUND DRAINAGE [None]
